FAERS Safety Report 10041676 (Version 2)
Quarter: 2014Q2

REPORT INFORMATION
  Report Type: Report from Study
  Country: FR (occurrence: FR)
  Receive Date: 20140327
  Receipt Date: 20140607
  Transmission Date: 20141212
  Serious: Yes (Hospitalization)
  Sender: FDA-Public Use
  Company Number: PHHO2014FR004011

PATIENT
  Sex: 0

DRUGS (1)
  1. METHOTREXATE [Suspect]
     Dosage: 19 G, UNK
     Route: 042
     Dates: start: 20140304, end: 20140304

REACTIONS (2)
  - Hepatocellular injury [Recovering/Resolving]
  - Mucosal inflammation [Recovered/Resolved]
